FAERS Safety Report 9506261 (Version 1)
Quarter: 2013Q1

REPORT INFORMATION
  Report Type: Spontaneous
  Country: US (occurrence: None)
  Receive Date: 20130305
  Receipt Date: 20130305
  Transmission Date: 20140127
  Serious: Yes (Other)
  Sender: FDA-Public Use
  Company Number: 163-21880-12050185

PATIENT
  Age: 81 Year
  Sex: Female

DRUGS (3)
  1. REVLIMID (LENALIDOMIDE) (5 MILLIGRAM, CAPSULES) [Suspect]
     Indication: 5Q MINUS SYNDROME
     Dosage: 5 MG, 1 IN 1 D, PO
     Route: 048
     Dates: start: 20120403
  2. AMOXICILLIN (AMOXICILLIN) [Concomitant]
  3. ANTI-DIARRHEAL (LOPERAMIDE HYDROCHLORIDE) [Concomitant]

REACTIONS (9)
  - Pulmonary embolism [None]
  - Chest pain [None]
  - Haemoglobin decreased [None]
  - Diverticulitis [None]
  - Cataract [None]
  - Contusion [None]
  - Infection [None]
  - Pruritus [None]
  - Dry skin [None]
